FAERS Safety Report 25893403 (Version 4)
Quarter: 2025Q4

REPORT INFORMATION
  Report Type: Spontaneous
  Country: US (occurrence: US)
  Receive Date: 20251008
  Receipt Date: 20251110
  Transmission Date: 20260118
  Serious: Yes (Life-Threatening, Hospitalization, Other)
  Sender: BOEHRINGER INGELHEIM
  Company Number: US-Komodo Health-a23aa00000Afi7NAAR

PATIENT
  Age: 71 Year
  Sex: Male

DRUGS (3)
  1. COMBIVENT RESPIMAT [Suspect]
     Active Substance: ALBUTEROL SULFATE\IPRATROPIUM BROMIDE
     Indication: Chronic obstructive pulmonary disease
     Dosage: 1 PUFF
     Dates: start: 2010
  2. SPIRIVA RESPIMAT [Suspect]
     Active Substance: TIOTROPIUM BROMIDE
     Indication: Chronic obstructive pulmonary disease
     Dosage: 2 PUFFS OF 2.5 MCG
     Dates: start: 2022
  3. BUDESONIDE [Concomitant]
     Active Substance: BUDESONIDE
     Indication: Product used for unknown indication

REACTIONS (12)
  - Cardiac arrest [Recovered/Resolved]
  - Near death experience [Recovered/Resolved]
  - Sternal fracture [Recovered/Resolved]
  - Rib fracture [Recovered/Resolved]
  - Aortic aneurysm [Recovered/Resolved]
  - Thrombosis [Recovered/Resolved]
  - Ejection fraction abnormal [Recovered/Resolved]
  - Brain natriuretic peptide decreased [Recovered/Resolved]
  - Gastrointestinal procedural complication [Recovered/Resolved]
  - Respiratory tract congestion [Recovered/Resolved]
  - Product delivery mechanism issue [Not Recovered/Not Resolved]
  - Dyspnoea [Recovered/Resolved]

NARRATIVE: CASE EVENT DATE: 20240901
